FAERS Safety Report 9613638 (Version 1)
Quarter: 2013Q4

REPORT INFORMATION
  Report Type: Spontaneous
  Country: JO (occurrence: JO)
  Receive Date: 20131010
  Receipt Date: 20131010
  Transmission Date: 20140711
  Serious: Yes (Death)
  Sender: FDA-Public Use
  Company Number: JO-ROCHE-1287554

PATIENT
  Sex: Female

DRUGS (1)
  1. MIRCERA [Suspect]
     Indication: ANAEMIA
     Dosage: 200 MCG ONCE MONTHLY
     Route: 017
     Dates: start: 201306, end: 201309

REACTIONS (1)
  - Pneumonia [Fatal]
